FAERS Safety Report 9996377 (Version 2)
Quarter: 2014Q1

REPORT INFORMATION
  Report Type: Spontaneous
  Country: GB (occurrence: GB)
  Receive Date: 20140311
  Receipt Date: 20140311
  Transmission Date: 20141002
  Serious: Yes (Congenital Anomaly)
  Sender: FDA-Public Use
  Company Number: GB-VIIV HEALTHCARE LIMITED-B0434756A

PATIENT
  Sex: Male
  Weight: 2.7 kg

DRUGS (8)
  1. KIVEXA [Suspect]
     Indication: HIV INFECTION
     Dosage: 1TAB PER DAY
     Route: 064
     Dates: end: 20051225
  2. COMBIVIR [Suspect]
     Indication: HIV INFECTION
     Dosage: 2TAB PER DAY
     Route: 064
     Dates: start: 20060411
  3. VIRAMUNE [Suspect]
     Indication: HIV INFECTION
     Dosage: 400MG PER DAY
     Route: 064
     Dates: end: 20051225
  4. INVIRASE [Suspect]
     Indication: HIV INFECTION
     Dosage: 2000MG PER DAY
     Route: 064
     Dates: start: 20060411
  5. NORVIR [Suspect]
     Indication: HIV INFECTION
     Dosage: 200MG PER DAY
     Route: 064
     Dates: start: 20060411
  6. EPZICOM [Suspect]
     Indication: MATERNAL EXPOSURE TIMING UNSPECIFIED
     Route: 064
     Dates: end: 20051225
  7. NEVIRAPINE [Suspect]
     Route: 064
     Dates: end: 20051225
  8. SAQUINAVIR [Suspect]
     Dosage: 2000MG PER DAY
     Route: 064
     Dates: start: 20060411

REACTIONS (3)
  - Alpha 1 foetoprotein increased [Unknown]
  - Prenatal screening test abnormal [Unknown]
  - Foetal exposure during pregnancy [Unknown]
